FAERS Safety Report 18754138 (Version 1)
Quarter: 2021Q1

REPORT INFORMATION
  Report Type: Spontaneous
  Country: US (occurrence: US)
  Receive Date: 20210119
  Receipt Date: 20210119
  Transmission Date: 20210419
  Serious: Yes (Other)
  Sender: FDA-Public Use
  Company Number: US-INFO-001128

PATIENT
  Sex: Female

DRUGS (1)
  1. ZOLEDRONIC ACID 5MG [Suspect]
     Active Substance: ZOLEDRONIC ACID
     Route: 041
     Dates: start: 20201016

REACTIONS (1)
  - Discomfort [Not Recovered/Not Resolved]
